FAERS Safety Report 8202598-4 (Version None)
Quarter: 2012Q1

REPORT INFORMATION
  Report Type: 
  Country: None (occurrence: None)
  Receive Date: 20120227
  Receipt Date: 20120131
  Transmission Date: 20120608
  Serious: Yes (Hospitalization)
  Sender: FDA-Public Use
  Company Number: 341468

PATIENT
  Age: 65 Year
  Sex: Female
  Weight: 96.1 kg

DRUGS (7)
  1. LOVASTATIN [Concomitant]
  2. VICTOZA (LIRAGLUTIDE) SOLUTION FOR INJECTION, 6MG/ML ; VICTOZA REGIMEN [Suspect]
     Indication: TYPE 2 DIABETES MELLITUS
     Dosage: SUBCUTANEOUS
     Route: 058
     Dates: start: 20111012, end: 20111101
  3. VICTOZA (LIRAGLUTIDE) SOLUTION FOR INJECTION, 6MG/ML ; VICTOZA REGIMEN [Suspect]
     Indication: TYPE 2 DIABETES MELLITUS
     Dosage: SUBCUTANEOUS
     Route: 058
     Dates: start: 20111101, end: 20111203
  4. LEVOTHYROXINE /00068002/ (LEVOTHYROXINE SODIUM) [Concomitant]
  5. LISINOPRIL /00894002/ (LISINOPRIL DIHYDRATE) [Concomitant]
  6. METFORMIN /00082702/ (METFORMIN HYDROCHLORIDE) [Concomitant]
  7. VALTREX [Concomitant]

REACTIONS (1)
  - PANCREATITIS ACUTE [None]
